FAERS Safety Report 10467122 (Version 3)
Quarter: 2015Q1

REPORT INFORMATION
  Report Type: Spontaneous
  Country: US (occurrence: US)
  Receive Date: 20140922
  Receipt Date: 20150304
  Transmission Date: 20150720
  Serious: Yes (Hospitalization, Other)
  Sender: FDA-Public Use
  Company Number: US-009507513-1409USA009895

PATIENT
  Sex: Male
  Weight: 116.55 kg

DRUGS (1)
  1. JANUVIA [Suspect]
     Active Substance: SITAGLIPTIN PHOSPHATE
     Indication: TYPE 2 DIABETES MELLITUS
     Dosage: 100 MG, QD
     Route: 048
     Dates: start: 20120106, end: 20130506

REACTIONS (15)
  - Umbilical hernia repair [Unknown]
  - Umbilical hernia [Unknown]
  - Pancreatic sphincterotomy [Unknown]
  - Appendicectomy [Unknown]
  - Pancreatitis [Unknown]
  - Cholecystectomy [Unknown]
  - Umbilical hernia repair [Unknown]
  - Pancreaticoduodenectomy [Unknown]
  - Joint swelling [Unknown]
  - Cholelithiasis [Unknown]
  - Adenocarcinoma pancreas [Unknown]
  - Intestinal adhesion lysis [Unknown]
  - Bile duct stent insertion [Unknown]
  - Pancreatic disorder [Unknown]
  - Varicose vein operation [Unknown]

NARRATIVE: CASE EVENT DATE: 20120901
